FAERS Safety Report 9144924 (Version 2)
Quarter: 2013Q2

REPORT INFORMATION
  Report Type: Spontaneous
  Country: US (occurrence: US)
  Receive Date: 20130307
  Receipt Date: 20130614
  Transmission Date: 20140414
  Serious: Yes (Hospitalization)
  Sender: FDA-Public Use
  Company Number: US-AMGEN-USASP2013013750

PATIENT
  Age: 36 Year
  Sex: Male

DRUGS (4)
  1. PROLIA [Suspect]
     Indication: OSTEOPOROSIS
     Dosage: 60 MG, Q6MO, 1 DOSE
     Route: 058
     Dates: start: 20130121, end: 20130121
  2. VELCADE [Concomitant]
     Dosage: 1,4,11,18 DAYS, 28 DAYS CYCLE
     Route: 058
     Dates: start: 20130121
  3. REVLIMID [Concomitant]
     Dosage: 15 MG, QD 21 DAYS AND 28 DAYS, 1,4,11,18
     Route: 048
     Dates: start: 20130121
  4. DECADRON                           /00016001/ [Concomitant]
     Dosage: 20 MG, 1,4,11,18 DAYS
     Route: 048
     Dates: start: 20130121

REACTIONS (6)
  - Pain [Unknown]
  - Palpitations [Unknown]
  - Hypocalcaemia [Recovered/Resolved]
  - Hypoaesthesia [Unknown]
  - Muscle spasms [Unknown]
  - Paraesthesia [Unknown]
